FAERS Safety Report 25036680 (Version 2)
Quarter: 2025Q2

REPORT INFORMATION
  Report Type: Spontaneous
  Country: US (occurrence: US)
  Receive Date: 20250304
  Receipt Date: 20250429
  Transmission Date: 20250717
  Serious: No
  Sender: LUNDBECK
  Company Number: US-LUNDBECK-DKLU4011506

PATIENT
  Age: 68 Year
  Sex: Female
  Weight: 61.235 kg

DRUGS (1)
  1. VYEPTI [Suspect]
     Active Substance: EPTINEZUMAB-JJMR
     Indication: Migraine
     Dosage: 300 MILLIGRAM
     Route: 041

REACTIONS (3)
  - Rhinorrhoea [Unknown]
  - Eye swelling [Recovered/Resolved]
  - Dry eye [Recovered/Resolved]
